FAERS Safety Report 15506425 (Version 4)
Quarter: 2020Q1

REPORT INFORMATION
  Report Type: Spontaneous
  Country: US (occurrence: US)
  Receive Date: 20181016
  Receipt Date: 20200127
  Transmission Date: 20200409
  Serious: No
  Sender: FDA-Public Use
  Company Number: US-ASTRAZENECA-2018SF30417

PATIENT
  Age: 24894 Day
  Sex: Female
  Weight: 37.6 kg

DRUGS (14)
  1. GOCOVRI [Interacting]
     Active Substance: AMANTADINE
     Indication: DYSKINESIA
     Route: 048
     Dates: end: 201901
  2. SINEMET [Concomitant]
     Active Substance: CARBIDOPA\LEVODOPA
  3. FIORINAL [Concomitant]
     Active Substance: ASPIRIN\BUTALBITAL\CAFFEINE
  4. PEPCID [Concomitant]
     Active Substance: FAMOTIDINE
  5. MOTRIN [Concomitant]
     Active Substance: IBUPROFEN
  6. NEXIUM [Suspect]
     Active Substance: ESOMEPRAZOLE MAGNESIUM
     Route: 048
  7. TUMS [Concomitant]
     Active Substance: CALCIUM CARBONATE
  8. SEROQUEL [Suspect]
     Active Substance: QUETIAPINE FUMARATE
     Route: 048
     Dates: end: 20180903
  9. AZILECT [Concomitant]
     Active Substance: RASAGILINE MESYLATE
  10. GOCOVRI [Interacting]
     Active Substance: AMANTADINE
     Indication: DYSKINESIA
     Route: 048
     Dates: start: 20190124
  11. GOCOVRI [Interacting]
     Active Substance: AMANTADINE
     Indication: DYSKINESIA
     Route: 048
     Dates: start: 20180825, end: 20180831
  12. GOCOVRI [Interacting]
     Active Substance: AMANTADINE
     Indication: DYSKINESIA
     Route: 048
     Dates: start: 20180901
  13. GOCOVRI [Interacting]
     Active Substance: AMANTADINE
     Indication: DYSKINESIA
     Route: 048
     Dates: start: 201901, end: 20190123
  14. DULCOLAX NOS [Concomitant]
     Active Substance: BISACODYL OR DOCUSATE SODIUM

REACTIONS (28)
  - Dyskinesia [Unknown]
  - Sleep talking [Not Recovered/Not Resolved]
  - Drug interaction [Unknown]
  - Deafness unilateral [Recovered/Resolved]
  - Depressed mood [Unknown]
  - Sleep disorder [Unknown]
  - Middle insomnia [Unknown]
  - Psychomotor hyperactivity [Unknown]
  - Muscle tightness [Not Recovered/Not Resolved]
  - Viral infection [Recovering/Resolving]
  - Speech disorder [Unknown]
  - Hallucination [Not Recovered/Not Resolved]
  - Back pain [Not Recovered/Not Resolved]
  - Confusional state [Not Recovered/Not Resolved]
  - Alopecia [Recovered/Resolved]
  - Somnolence [Unknown]
  - Fatigue [Not Recovered/Not Resolved]
  - Limb injury [Unknown]
  - Fear of falling [Unknown]
  - Fall [Not Recovered/Not Resolved]
  - Hypoaesthesia [Unknown]
  - Balance disorder [Unknown]
  - Tremor [Not Recovered/Not Resolved]
  - Intentional product misuse [Unknown]
  - Muscular weakness [Not Recovered/Not Resolved]
  - Finger deformity [Unknown]
  - Arthritis [Unknown]
  - Myalgia [Not Recovered/Not Resolved]

NARRATIVE: CASE EVENT DATE: 20180905
